FAERS Safety Report 5450365-7 (Version None)
Quarter: 2007Q3

REPORT INFORMATION
  Report Type: 
  Country: None (occurrence: None)
  Receive Date: 20070808
  Receipt Date: 20061215
  Transmission Date: 20080115
  Serious: Yes (Other)
  Sender: FDA-Public Use
  Company Number: 33079

PATIENT
  Sex: Male

DRUGS (2)
  1. VECURONIUM BROMIDE [Suspect]
     Dosage: 10MG
     Dates: start: 20061213
  2. VECURONIUM BROMIDE [Suspect]
     Dosage: 10MG
     Dates: start: 20061213

REACTIONS (1)
  - DRUG INEFFECTIVE [None]
